FAERS Safety Report 20034564 (Version 1)
Quarter: 2021Q4

REPORT INFORMATION
  Report Type: Spontaneous
  Country: DE (occurrence: DE)
  Receive Date: 20211104
  Receipt Date: 20211104
  Transmission Date: 20220303
  Serious: Yes (Hospitalization)
  Sender: FDA-Public Use
  Company Number: DE-ADRED-06918-01

PATIENT
  Age: 67 Year
  Sex: Female
  Weight: 68 kg

DRUGS (16)
  1. ZOLEDRONIC ACID [Suspect]
     Active Substance: ZOLEDRONIC ACID
     Indication: Product used for unknown indication
     Dosage: NACH SCHEMA
  2. PANTOPRAZOL                        /01263201/ [Concomitant]
     Dosage: 40 MG, 1-0-0-0
  3. METAMIZOL                          /06276701/ [Concomitant]
     Dosage: 40 GTT, 1-1-1-1
  4. DOMPERIDON                         /00498201/ [Concomitant]
     Dosage: 10 MG, 1-0-1-0
  5. AMITRIPTYLINE [Concomitant]
     Active Substance: AMITRIPTYLINE
     Dosage: 50 MG, 0-0-0-1
  6. POTASSIUM CHLORIDE [Concomitant]
     Active Substance: POTASSIUM CHLORIDE
     Dosage: 1 DOSAGE FORM, 1-0-1-0
  7. MORPHINE [Concomitant]
     Active Substance: MORPHINE
     Dosage: 5 MG, BEDARF
  8. MORPHINE [Concomitant]
     Active Substance: MORPHINE
     Dosage: 10 MG, 2-0-2-0
  9. SPIRONOLACTONE [Concomitant]
     Active Substance: SPIRONOLACTONE
     Dosage: 25 MG, 1-0-0-0
  10. BISACODYL [Concomitant]
     Active Substance: BISACODYL
     Dosage: 10 GTT, 1-0-0-0
  11. PREGABALIN [Concomitant]
     Active Substance: PREGABALIN
     Dosage: 50 MG, 1-0-1-0
  12. TOLVAPTAN [Concomitant]
     Active Substance: TOLVAPTAN
     Dosage: 7.5 MG, 1-0-0-0
  13. POTASSIUM CITRATE [Concomitant]
     Active Substance: POTASSIUM CITRATE
     Dosage: 1-1-1-0
  14. POTASSIUM PHOSPHATE                /00493501/ [Concomitant]
     Dosage: 2-2-2-0
  15. CANDESARTAN [Concomitant]
     Active Substance: CANDESARTAN
     Dosage: 4 MG, 1-0-0-0
  16. LEVOTHYROXINE SODIUM [Concomitant]
     Active Substance: LEVOTHYROXINE SODIUM
     Dosage: 125 ?G, 1-0-0-0

REACTIONS (7)
  - Hypertension [Unknown]
  - General physical health deterioration [Unknown]
  - Musculoskeletal pain [Unknown]
  - Anaemia [Unknown]
  - Pain [Unknown]
  - Night sweats [Unknown]
  - Condition aggravated [Unknown]
